FAERS Safety Report 13818121 (Version 1)
Quarter: 2017Q3

REPORT INFORMATION
  Report Type: Spontaneous
  Country: US (occurrence: US)
  Receive Date: 20170731
  Receipt Date: 20170731
  Transmission Date: 20171127
  Serious: Yes (Other)
  Sender: FDA-Public Use
  Company Number: US-ROCHE-640125

PATIENT
  Age: 73 Year
  Sex: Female
  Weight: 78.5 kg

DRUGS (5)
  1. JANUVIA [Concomitant]
     Active Substance: SITAGLIPTIN PHOSPHATE
     Indication: TYPE 2 DIABETES MELLITUS
     Dosage: DOSE: 100 (UNITS NOT REPORTED), DAILY
     Route: 048
  2. AVANDAMET [Concomitant]
     Active Substance: METFORMIN HYDROCHLORIDE\ROSIGLITAZONE MALEATE
     Indication: TYPE 2 DIABETES MELLITUS
     Dosage: DOSE: 4/1000 (UNITS NOT REPORTED);
     Route: 048
  3. DIOVAN [Concomitant]
     Active Substance: VALSARTAN
     Indication: HYPERTENSION
     Dosage: DOSE: 160/12.5, EVERY AM
     Route: 048
  4. ZOCOR [Concomitant]
     Active Substance: SIMVASTATIN
     Indication: HYPERLIPIDAEMIA
     Dosage: DOSE: 80 (UNITS NOT REPORTED)
     Route: 048
  5. BONIVA [Suspect]
     Active Substance: IBANDRONATE SODIUM
     Indication: OSTEOPOROSIS
     Dosage: DOSE: 3MG/3ML MONTHLY; DOSE FORM: SYRINGE
     Route: 042
     Dates: start: 20090610, end: 20090610

REACTIONS (5)
  - Injection site pain [Recovering/Resolving]
  - Injection site induration [Recovering/Resolving]
  - Injection site cellulitis [Recovered/Resolved]
  - Injection site inflammation [Recovering/Resolving]
  - Injection site extravasation [Recovering/Resolving]

NARRATIVE: CASE EVENT DATE: 20090610
